FAERS Safety Report 9566017 (Version 1)
Quarter: 2013Q3

REPORT INFORMATION
  Report Type: Report from Study
  Country: FR (occurrence: FR)
  Receive Date: 20130930
  Receipt Date: 20130930
  Transmission Date: 20140515
  Serious: Yes (Hospitalization, Other)
  Sender: FDA-Public Use
  Company Number: FR-UCBSA-098575

PATIENT
  Age: 77 Year
  Sex: Female
  Weight: 62 kg

DRUGS (13)
  1. CIMZIA [Suspect]
     Indication: RHEUMATOID ARTHRITIS
     Route: 058
     Dates: start: 20130412, end: 20130616
  2. DIFFU-K [Concomitant]
     Indication: PROPHYLAXIS
     Route: 048
  3. METOJECT [Concomitant]
     Indication: RHEUMATOID ARTHRITIS
  4. CORTANCYL [Concomitant]
     Indication: RHEUMATOID ARTHRITIS
     Route: 048
     Dates: start: 2010
  5. OROCAL D3 [Concomitant]
     Indication: RHEUMATOID ARTHRITIS
     Dosage: 1 TABLET
     Route: 048
     Dates: start: 2010
  6. TOPALGIC [Concomitant]
     Indication: PAIN
     Route: 048
  7. ACUPAN [Concomitant]
     Indication: PAIN
     Dosage: 1 AMPOULE DAILY
     Route: 030
  8. FORLAX [Concomitant]
     Indication: CONSTIPATION
     Dosage: 4000, 1 PACKET, ON REQUEST
  9. INEXIUM [Concomitant]
     Indication: GASTRITIS PROPHYLAXIS
     Route: 048
     Dates: end: 20130626
  10. SPECIAFOLDINE [Concomitant]
     Indication: PROPHYLAXIS
     Dosage: 2 TABLETS WEEKLY
     Route: 048
  11. KLIPAL CODEINE [Concomitant]
     Indication: PAIN
     Route: 048
     Dates: end: 20130626
  12. NISISCO [Concomitant]
     Indication: HYPERTENSION
     Dosage: 80/12.5 MG DAILY
     Route: 048
     Dates: end: 20130618
  13. DOLIPRANE [Concomitant]
     Indication: RHEUMATOID ARTHRITIS
     Route: 048
     Dates: end: 20130626

REACTIONS (1)
  - Pneumonia [Recovered/Resolved]
